FAERS Safety Report 4485652-2 (Version None)
Quarter: 2004Q4

REPORT INFORMATION
  Report Type: 
  Country: None (occurrence: None)
  Receive Date: 20041026
  Receipt Date: 20041019
  Transmission Date: 20050328
  Serious: Yes (Hospitalization)
  Sender: FDA-Public Use
  Company Number: US-MERCK-0410USA03030

PATIENT
  Age: 50 Year
  Sex: Female

DRUGS (5)
  1. VIOXX [Suspect]
     Indication: STRESS SYMPTOMS
     Route: 048
     Dates: start: 20031201, end: 20040301
  2. VIOXX [Suspect]
     Indication: DEPRESSION
     Route: 048
     Dates: start: 20031201, end: 20040301
  3. ASPIRIN [Concomitant]
     Route: 065
  4. VITAMINS (UNSPECIFIED) [Concomitant]
     Route: 065
  5. [THERAPY UNSPECIFIED] [Concomitant]
     Route: 065

REACTIONS (2)
  - CARDIAC FLUTTER [None]
  - MYOCARDIAL INFARCTION [None]
